FAERS Safety Report 8217393-X (Version None)
Quarter: 2012Q1

REPORT INFORMATION
  Report Type: 
  Country: None (occurrence: None)
  Receive Date: 20120313
  Receipt Date: 20120228
  Transmission Date: 20120608
  Serious: Yes (Congenital Anomaly)
  Sender: FDA-Public Use
  Company Number: PRIM20120002

PATIENT

DRUGS (3)
  1. DIAZEPAM [Suspect]
     Indication: MATERNAL EXPOSURE DURING PREGNANCY
     Dosage: UNK, TRANSPLACENTAL
     Route: 064
  2. MEPHENYTOIN (MEPHENYTOIN) [Suspect]
     Indication: MATERNAL EXPOSURE DURING PREGNANCY
     Dosage: UNK, TRANSPLACENTAL
     Route: 064
  3. PRIMIDONE [Suspect]
     Indication: MATERNAL EXPOSURE DURING PREGNANCY
     Dosage: UNK, TRANSPLACENTAL
     Route: 064

REACTIONS (6)
  - MATERNAL DRUGS AFFECTING FOETUS [None]
  - PATENT DUCTUS ARTERIOSUS [None]
  - CHOANAL ATRESIA [None]
  - SYNDACTYLY [None]
  - MICROTIA [None]
  - COLOBOMA [None]
